FAERS Safety Report 9016193 (Version 2)
Quarter: 2013Q1

REPORT INFORMATION
  Report Type: Report from Study
  Country: BR (occurrence: BR)
  Receive Date: 20130116
  Receipt Date: 20130327
  Transmission Date: 20140127
  Serious: Yes (Other)
  Sender: FDA-Public Use
  Company Number: BR-ABBOTT-13P-020-1034016-00

PATIENT
  Age: 26 None
  Sex: Female
  Weight: 71 kg

DRUGS (9)
  1. HUMIRA [Suspect]
     Indication: RHEUMATOID ARTHRITIS
     Route: 058
     Dates: start: 20120911
  2. HUMIRA [Suspect]
     Indication: ANKYLOSING SPONDYLITIS
  3. OMEPRAZOLE [Concomitant]
     Indication: GASTRIC DISORDER
     Route: 048
     Dates: start: 201202
  4. CICLO [Concomitant]
     Indication: CONTRACEPTION
     Route: 048
  5. PREDNISONE [Concomitant]
     Indication: PAIN
     Route: 048
     Dates: end: 20121214
  6. METHOTREXATE [Concomitant]
     Indication: ARTHRITIS
     Route: 048
  7. FOLIC ACID [Concomitant]
     Indication: VITAMIN SUPPLEMENTATION
     Route: 048
  8. OMEPRAZOLE [Concomitant]
     Indication: PAIN
     Route: 048
     Dates: start: 201201
  9. DORFLEX [Concomitant]
     Indication: PAIN

REACTIONS (8)
  - Deafness unilateral [Recovered/Resolved]
  - Arthropathy [Recovered/Resolved]
  - Ear infection [Recovered/Resolved]
  - Laryngitis [Recovered/Resolved]
  - Oral candidiasis [Not Recovered/Not Resolved]
  - External ear inflammation [Recovered/Resolved]
  - Pain [Recovered/Resolved]
  - Oropharyngeal pain [Unknown]
